FAERS Safety Report 19862528 (Version 2)
Quarter: 2021Q4

REPORT INFORMATION
  Report Type: Report from Study
  Country: CA (occurrence: CA)
  Receive Date: 20210921
  Receipt Date: 20211217
  Transmission Date: 20220303
  Serious: Yes (Other)
  Sender: FDA-Public Use
  Company Number: CA-JNJFOC-20210809170

PATIENT
  Age: 54 Year
  Sex: Male
  Weight: 100.4 kg

DRUGS (1)
  1. REMICADE [Suspect]
     Active Substance: INFLIXIMAB
     Indication: Crohn^s disease
     Dosage: V1 EXPIRY DATE : FEB-2024
     Route: 042
     Dates: start: 20160322

REACTIONS (2)
  - Lymphoma [Unknown]
  - Biopsy [Unknown]

NARRATIVE: CASE EVENT DATE: 20210101
